FAERS Safety Report 17556466 (Version 3)
Quarter: 2020Q2

REPORT INFORMATION
  Report Type: Report from Study
  Country: CH (occurrence: CH)
  Receive Date: 20200318
  Receipt Date: 20200409
  Transmission Date: 20200713
  Serious: Yes (Hospitalization, Other)
  Sender: FDA-Public Use
  Company Number: CH-PFIZER INC-2020112274

PATIENT
  Age: 77 Year
  Sex: Female
  Weight: 43 kg

DRUGS (6)
  1. FILGRASTIM [Concomitant]
     Active Substance: FILGRASTIM
     Indication: NEUTROPENIA
     Dosage: 30 MILLION IU, 1X/DAY
     Route: 058
     Dates: start: 20200311
  2. GLASDEGIB [Suspect]
     Active Substance: GLASDEGIB
     Indication: ACUTE MYELOID LEUKAEMIA REFRACTORY
     Dosage: 100 MG, 1X/DAY
     Route: 048
     Dates: start: 20200307
  3. COTRIMOXAZOLE [Concomitant]
     Active Substance: SULFAMETHOXAZOLE\TRIMETHOPRIM
     Indication: PROPHYLAXIS
     Dosage: EVERY 48 HOURS, [SULFAMETHOXAZOLE 800 MG]/[TRIMETHOPRIM160 MG]
     Route: 048
     Dates: start: 20200206
  4. CIPROFLOXACIN. [Concomitant]
     Active Substance: CIPROFLOXACIN
     Indication: BACTERAEMIA
     Dosage: 750 MG, 1X/DAY
     Route: 048
     Dates: start: 20200310, end: 20200314
  5. ONDANSETRON [Concomitant]
     Active Substance: ONDANSETRON
     Indication: VOMITING
     Dosage: 4 MG, 3X/DAY
     Route: 048
     Dates: start: 20200307
  6. VALACYCLOVIR [Concomitant]
     Active Substance: VALACYCLOVIR HYDROCHLORIDE
     Indication: PROPHYLAXIS
     Dosage: 500 MG, 3X/DAY
     Route: 048
     Dates: start: 20200206

REACTIONS (3)
  - Electrocardiogram QT prolonged [Recovered/Resolved]
  - Febrile neutropenia [Recovered/Resolved]
  - Electrolyte imbalance [Not Recovered/Not Resolved]

NARRATIVE: CASE EVENT DATE: 20200312
